FAERS Safety Report 7117003-9 (Version None)
Quarter: 2010Q4

REPORT INFORMATION
  Report Type: 
  Country: None (occurrence: None)
  Receive Date: 20101122
  Receipt Date: 20101112
  Transmission Date: 20110411
  Serious: Yes (Death)
  Sender: FDA-Public Use
  Company Number: GB-PFIZER INC-2010146540

PATIENT

DRUGS (1)
  1. IBUPROFEN [Suspect]

REACTIONS (2)
  - OVERDOSE [None]
  - SEPSIS [None]
